FAERS Safety Report 9614369 (Version 7)
Quarter: 2014Q3

REPORT INFORMATION
  Report Type: Spontaneous
  Country: JP (occurrence: JP)
  Receive Date: 20131011
  Receipt Date: 20140702
  Transmission Date: 20150326
  Serious: Yes (Death)
  Sender: FDA-Public Use
  Company Number: JP-JNJFOC-20131004596

PATIENT
  Age: 80 Year
  Sex: Male
  Weight: 58 kg

DRUGS (16)
  1. ARTIST [Concomitant]
     Active Substance: CARVEDILOL
     Indication: CORONARY ANGIOPLASTY
     Route: 048
     Dates: start: 20090513
  2. LIVALO [Concomitant]
     Active Substance: PITAVASTATIN CALCIUM
     Indication: LIPIDS ABNORMAL
     Route: 048
     Dates: start: 20090513, end: 20130814
  3. XARELTO [Suspect]
     Active Substance: RIVAROXABAN
     Indication: CEREBROVASCULAR ACCIDENT PROPHYLAXIS
     Route: 048
     Dates: start: 20130724, end: 20130820
  4. MINOMYCIN [Concomitant]
     Active Substance: MINOCYCLINE HYDROCHLORIDE
     Indication: PNEUMONIA
     Route: 048
     Dates: start: 20130808, end: 20130812
  5. METHISTA [Concomitant]
     Active Substance: CARBOCYSTEINE
     Indication: PNEUMONIA
     Route: 048
     Dates: start: 20130808, end: 20130812
  6. CALONAL [Concomitant]
     Active Substance: ACETAMINOPHEN
     Route: 048
     Dates: start: 20130808
  7. XARELTO [Suspect]
     Active Substance: RIVAROXABAN
     Indication: ATRIAL FIBRILLATION
     Route: 048
     Dates: start: 20130724, end: 20130820
  8. XARELTO [Suspect]
     Active Substance: RIVAROXABAN
     Indication: ATRIAL FLUTTER
     Route: 048
     Dates: start: 20130724, end: 20130820
  9. PLAVIX [Concomitant]
     Active Substance: CLOPIDOGREL BISULFATE
     Indication: MYOCARDIAL ISCHAEMIA
     Route: 048
     Dates: start: 20090513, end: 20130825
  10. PLAVIX [Concomitant]
     Active Substance: CLOPIDOGREL BISULFATE
     Indication: CORONARY ANGIOPLASTY
     Route: 048
     Dates: start: 20090513, end: 20130825
  11. TRANSAMIN [Concomitant]
     Active Substance: TRANEXAMIC ACID
     Indication: PNEUMONIA
     Route: 048
     Dates: start: 20130808, end: 20130812
  12. LIVALO [Concomitant]
     Active Substance: PITAVASTATIN CALCIUM
     Indication: MYOCARDIAL ISCHAEMIA
     Route: 048
     Dates: start: 20090513, end: 20130814
  13. VASOLAN [Concomitant]
     Active Substance: VERAPAMIL HYDROCHLORIDE
     Indication: TACHYCARDIA
     Route: 065
     Dates: start: 20130723, end: 20130730
  14. PARIET [Concomitant]
     Active Substance: RABEPRAZOLE SODIUM
     Indication: MYOCARDIAL ISCHAEMIA
     Route: 048
     Dates: start: 20090513, end: 20130814
  15. ISALON [Concomitant]
     Active Substance: UNSPECIFIED INGREDIENT
     Indication: PNEUMONIA
     Route: 048
     Dates: start: 20130808, end: 20130812
  16. ARTIST [Concomitant]
     Active Substance: CARVEDILOL
     Indication: MYOCARDIAL ISCHAEMIA
     Route: 048
     Dates: start: 20090513

REACTIONS (2)
  - Rash pruritic [Recovering/Resolving]
  - Interstitial lung disease [Fatal]

NARRATIVE: CASE EVENT DATE: 201308
